FAERS Safety Report 7634801-3 (Version None)
Quarter: 2011Q3

REPORT INFORMATION
  Report Type: 
  Country: None (occurrence: None)
  Receive Date: 20110726
  Receipt Date: 20110713
  Transmission Date: 20111222
  Serious: Yes (Hospitalization)
  Sender: FDA-Public Use
  Company Number: US-BIOGENIDEC-2011BI023927

PATIENT
  Age: 38 Year
  Sex: Female

DRUGS (2)
  1. TYSABRI [Suspect]
     Indication: MULTIPLE SCLEROSIS
     Route: 042
     Dates: start: 20110502, end: 20110601
  2. HYDROCODONE BITARTRATE [Concomitant]

REACTIONS (4)
  - PNEUMONIA [None]
  - SPLENOMEGALY [None]
  - WHITE BLOOD CELL COUNT DECREASED [None]
  - RED BLOOD CELL COUNT DECREASED [None]
